FAERS Safety Report 5157850-6 (Version None)
Quarter: 2006Q4

REPORT INFORMATION
  Report Type: 
  Country: None (occurrence: None)
  Receive Date: 20061120
  Receipt Date: 20061120
  Transmission Date: 20070319
  Serious: Yes (Life-Threatening)
  Sender: FDA-Public Use
  Company Number: None

PATIENT
  Sex: Female
  Weight: 80.4 kg

DRUGS (6)
  1. NOVOSEVEN [Suspect]
     Indication: SUBDURAL HAEMATOMA
     Dosage: 2400 MCG ONCE IV
     Route: 042
     Dates: start: 20061114
  2. FRESH FROZEN PLASMA [Concomitant]
  3. PLATELETS [Concomitant]
  4. RED BLOOD CELLS [Concomitant]
  5. MANNITOL [Concomitant]
  6. PHYTONADIONE [Concomitant]

REACTIONS (2)
  - ACUTE MYOCARDIAL INFARCTION [None]
  - SUBDURAL HAEMATOMA [None]
